FAERS Safety Report 8395868-0 (Version None)
Quarter: 2012Q2

REPORT INFORMATION
  Report Type: 
  Country: None (occurrence: None)
  Receive Date: 20120530
  Receipt Date: 20120516
  Transmission Date: 20120825
  Serious: Yes (Hospitalization)
  Sender: FDA-Public Use
  Company Number: US-UCBSA-057572

PATIENT
  Age: 83 Year
  Sex: Male
  Weight: 95.2 kg

DRUGS (1)
  1. CIMZIA [Suspect]
     Dosage: NO OF DOSES RECEIVED-16
     Route: 058
     Dates: start: 20111005, end: 20120516

REACTIONS (1)
  - LOBAR PNEUMONIA [None]
